FAERS Safety Report 6768289-1 (Version None)
Quarter: 2010Q2

REPORT INFORMATION
  Report Type: 
  Country: None (occurrence: None)
  Receive Date: 20100614
  Receipt Date: 20100602
  Transmission Date: 20101027
  Serious: Yes (Hospitalization, Other)
  Sender: FDA-Public Use
  Company Number: CA-NAPPMUNDI-CAN-2010-0001398

PATIENT
  Age: 26 Year
  Sex: Female
  Weight: 55 kg

DRUGS (4)
  1. DILAUDID [Suspect]
     Indication: DRUG USE FOR UNKNOWN INDICATION
     Route: 042
  2. REMICADE [Suspect]
     Indication: DRUG USE FOR UNKNOWN INDICATION
     Dosage: 300 MG, UNK
     Route: 042
  3. REMICADE [Suspect]
     Dosage: 300 MG, UNK
     Route: 042
  4. REMICADE [Suspect]
     Dosage: 300 MG, UNK
     Route: 042

REACTIONS (7)
  - DYSURIA [None]
  - FLANK PAIN [None]
  - LITHOTRIPSY [None]
  - NEPHROLITHIASIS [None]
  - NEPHROSTOMY TUBE PLACEMENT [None]
  - OVERDOSE [None]
  - RESPIRATORY ARREST [None]
